FAERS Safety Report 12301328 (Version 2)
Quarter: 2017Q3

REPORT INFORMATION
  Report Type: Spontaneous
  Country: US (occurrence: US)
  Receive Date: 20160425
  Receipt Date: 20170707
  Transmission Date: 20171127
  Serious: Yes (Other)
  Sender: FDA-Public Use
  Company Number: US-PFIZER INC-2016226333

PATIENT
  Age: 31 Year
  Sex: Female
  Weight: 68 kg

DRUGS (2)
  1. GEODON [Suspect]
     Active Substance: ZIPRASIDONE HYDROCHLORIDE\ZIPRASIDONE MESYLATE
     Dosage: UNK
  2. ZELDOX [Suspect]
     Active Substance: ZIPRASIDONE
     Dosage: 20 MG, 4 TIMES A DAY BUT COULD TAKE AN EXTRA 20 MG IF NEEDED
     Route: 048

REACTIONS (4)
  - Loss of personal independence in daily activities [Not Recovered/Not Resolved]
  - Suicidal behaviour [Unknown]
  - Somnolence [Unknown]
  - Paranoia [Unknown]

NARRATIVE: CASE EVENT DATE: 201603
